FAERS Safety Report 9939629 (Version 2)
Quarter: 2014Q4

REPORT INFORMATION
  Report Type: Spontaneous
  Country: US (occurrence: US)
  Receive Date: 20140303
  Receipt Date: 20141107
  Transmission Date: 20150529
  Serious: Yes (Congenital Anomaly, Other)
  Sender: FDA-Public Use
  Company Number: US-ELI_LILLY_AND_COMPANY-US201402008670

PATIENT
  Sex: Female

DRUGS (1)
  1. PROZAC [Suspect]
     Active Substance: FLUOXETINE HYDROCHLORIDE
     Indication: PRODUCT USED FOR UNKNOWN INDICATION
     Dosage: 1 DF, UNKNOWN
     Route: 064

REACTIONS (8)
  - Tricuspid valve incompetence [Unknown]
  - Mitral valve incompetence [Unknown]
  - Foetal exposure during pregnancy [Unknown]
  - Left ventricular hypertrophy [Unknown]
  - Right ventricular hypertrophy [Unknown]
  - Cardiac murmur [Unknown]
  - Atrioventricular septal defect [Unknown]
  - Meconium in amniotic fluid [Unknown]
